FAERS Safety Report 5158594-7 (Version None)
Quarter: 2006Q4

REPORT INFORMATION
  Report Type: 
  Country: None (occurrence: None)
  Receive Date: 20061128
  Receipt Date: 20061115
  Transmission Date: 20070319
  Serious: Yes (Other)
  Sender: FDA-Public Use
  Company Number: GB-ELI_LILLY_AND_COMPANY-GB200611003051

PATIENT
  Age: 12 Year
  Sex: Male

DRUGS (4)
  1. STRATTERA [Suspect]
     Indication: HYPERKINESIA
     Dosage: 18 MG, UNKNOWN
     Route: 048
     Dates: start: 20060823, end: 20060829
  2. STRATTERA [Suspect]
     Dosage: 40 MG, UNKNOWN
     Route: 048
     Dates: start: 20060830, end: 20061016
  3. METHYLPHENIDATE HCL [Concomitant]
     Indication: ATTENTION DEFICIT/HYPERACTIVITY DISORDER
     Dosage: 54 MG, UNKNOWN
     Route: 048
     Dates: start: 20060814, end: 20060822
  4. OMEGA-3 MARINE TRIGLYCERIDES [Concomitant]
     Indication: ATTENTION DEFICIT/HYPERACTIVITY DISORDER
     Dosage: UNK, UNKNOWN
     Route: 048

REACTIONS (2)
  - BLOOD BILIRUBIN INCREASED [None]
  - JAUNDICE [None]
